FAERS Safety Report 20827000 (Version 1)
Quarter: 2022Q2

REPORT INFORMATION
  Report Type: Spontaneous
  Country: US (occurrence: None)
  Receive Date: 20220513
  Receipt Date: 20220513
  Transmission Date: 20220721
  Serious: Yes (Hospitalization)
  Sender: FDA-Public Use
  Company Number: None

PATIENT
  Sex: Female
  Weight: 73.2 kg

DRUGS (3)
  1. THYMOCYTE IMMUNE GLOBULIN NOS [Suspect]
     Active Substance: THYMOCYTE IMMUNE GLOBULIN NOS
  2. BUSULFAN [Concomitant]
     Active Substance: BUSULFAN
  3. FLUDARABINE PHOSPHATE [Concomitant]

REACTIONS (11)
  - Human rhinovirus test positive [None]
  - Thrombocytopenia [None]
  - Hepatomegaly [None]
  - Liver function test increased [None]
  - Aspartate aminotransferase increased [None]
  - Alanine aminotransferase increased [None]
  - Abdominal pain [None]
  - Ascites [None]
  - Weight increased [None]
  - Hypophagia [None]
  - Blood bilirubin increased [None]

NARRATIVE: CASE EVENT DATE: 20220505
